FAERS Safety Report 23722788 (Version 1)
Quarter: 2024Q2

REPORT INFORMATION
  Report Type: Spontaneous
  Country: US (occurrence: US)
  Receive Date: 20240409
  Receipt Date: 20240409
  Transmission Date: 20240716
  Serious: Yes (Hospitalization, Other)
  Sender: FDA-Public Use
  Company Number: US-PFIZER INC-PV202400045051

PATIENT
  Age: 55 Year
  Sex: Male

DRUGS (1)
  1. METRONIDAZOLE [Suspect]
     Active Substance: METRONIDAZOLE
     Indication: Liver abscess
     Dosage: UNK

REACTIONS (15)
  - Dysmetria [Unknown]
  - Toxic encephalopathy [Unknown]
  - Dysphagia [Unknown]
  - Nausea [Unknown]
  - Dizziness [Unknown]
  - Vertigo [Unknown]
  - Asthenia [Unknown]
  - Dysarthria [Unknown]
  - Gait inability [Unknown]
  - Ataxia [Unknown]
  - Vomiting [Unknown]
  - Headache [Unknown]
  - Grip strength decreased [Unknown]
  - Areflexia [Unknown]
  - Trismus [Unknown]
